FAERS Safety Report 5350418-8 (Version None)
Quarter: 2007Q2

REPORT INFORMATION
  Report Type: 
  Country: None (occurrence: None)
  Receive Date: 20070605
  Receipt Date: 20070605
  Transmission Date: 20071010
  Serious: Yes (Congenital Anomaly)
  Sender: FDA-Public Use
  Company Number: None

PATIENT
  Age: 29 Year
  Sex: Female
  Weight: 72.5755 kg

DRUGS (1)
  1. ELIDEL [Suspect]
     Indication: SEBORRHOEIC DERMATITIS
     Dosage: 1% QD CUTANEOUS
     Route: 003
     Dates: start: 20030401, end: 20031101

REACTIONS (2)
  - DRUG EXPOSURE DURING PREGNANCY [None]
  - HYPOALDOSTERONISM [None]
